FAERS Safety Report 8866205 (Version 1)
Quarter: 2012Q4

REPORT INFORMATION
  Report Type: 
  Country: CA (occurrence: CA)
  Receive Date: 20121025
  Receipt Date: 20121025
  Transmission Date: 20130627
  Serious: Yes (Death, Other)
  Sender: FDA-Public Use
  Company Number: CA-009507513-1210CAN010295

PATIENT
  Age: 53 Year
  Sex: Male

DRUGS (2)
  1. TEMOZOLOMIDE [Suspect]
     Indication: GLIOBLASTOMA
     Dosage: 75 mg/m2, UNK
  2. RADIATION THERAPY [Suspect]
     Indication: GLIOBLASTOMA
     Dosage: combined dose of 60 Gy in 30 fractions

REACTIONS (7)
  - Pulmonary embolism [Fatal]
  - Metastases to meninges [Unknown]
  - Neoplasm recurrence [Unknown]
  - Disease progression [Unknown]
  - Myelopathy [Unknown]
  - Ataxia [Unknown]
  - Urinary incontinence [Unknown]
